FAERS Safety Report 10452278 (Version 1)
Quarter: 2014Q3

REPORT INFORMATION
  Report Type: Spontaneous
  Country: US (occurrence: None)
  Receive Date: 20140912
  Receipt Date: 20140912
  Transmission Date: 20150326
  Serious: Yes (Other)
  Sender: FDA-Public Use
  Company Number: None

PATIENT
  Sex: Male

DRUGS (1)
  1. BICILLIN [Suspect]
     Active Substance: PENICILLIN G BENZATHINE
     Dosage: 1.2 MILLION UNITS, INTRAMUSCULAR
     Route: 030

REACTIONS (3)
  - Lip swelling [None]
  - Eye pain [None]
  - Dyspnoea [None]

NARRATIVE: CASE EVENT DATE: 20140707
